FAERS Safety Report 5368558-6 (Version None)
Quarter: 2007Q2

REPORT INFORMATION
  Report Type: 
  Country: None (occurrence: None)
  Receive Date: 20070625
  Receipt Date: 20070614
  Transmission Date: 20071010
  Serious: Yes (Hospitalization)
  Sender: FDA-Public Use
  Company Number: BE-JNJFOC-20070503659

PATIENT
  Sex: Male

DRUGS (7)
  1. REMINYL [Suspect]
     Indication: DRUG USE FOR UNKNOWN INDICATION
     Route: 048
  2. DEPONIT 10 [Concomitant]
     Dosage: 1 PATCH/DAY
  3. CITALOPRAM EG [Concomitant]
  4. SOLLAN [Concomitant]
  5. PLAVIX [Concomitant]
  6. ASAFLOW [Concomitant]
  7. SYMBICORT TURBOHALER FORTE [Concomitant]

REACTIONS (4)
  - ANOREXIA [None]
  - BEDRIDDEN [None]
  - GENERAL PHYSICAL HEALTH DETERIORATION [None]
  - SOMNOLENCE [None]
